FAERS Safety Report 15624775 (Version 1)
Quarter: 2018Q4

REPORT INFORMATION
  Report Type: Spontaneous
  Country: FR (occurrence: FR)
  Receive Date: 20181116
  Receipt Date: 20181116
  Transmission Date: 20190205
  Serious: Yes (Hospitalization)
  Sender: FDA-Public Use
  Company Number: PHHY2018FR152205

PATIENT
  Age: 82 Year
  Sex: Male

DRUGS (5)
  1. AMOXICILLINE ACIDE CLAVULANIQUE PANPHARMA [Suspect]
     Active Substance: AMOXICILLIN\CLAVULANIC ACID
     Indication: ENDOCARDITIS
     Dosage: 12 MG, QD
     Route: 042
     Dates: start: 20180919, end: 20180924
  2. OPTIRAY [Suspect]
     Active Substance: IOVERSOL
     Indication: SCAN WITH CONTRAST
     Dosage: 90 ML, UNK
     Route: 042
  3. TRIATEC (RAMIPRIL) [Suspect]
     Active Substance: RAMIPRIL
     Indication: HYPERTENSION
     Dosage: 2.5 MG, QD
     Route: 048
     Dates: end: 20180924
  4. AMOXICILLINE HEXAL [Suspect]
     Active Substance: AMOXICILLIN
     Indication: INTERVERTEBRAL DISCITIS
     Dosage: 6 MG, QD
     Route: 048
     Dates: start: 20180912, end: 20180919
  5. CEFTRIAXONE. [Suspect]
     Active Substance: CEFTRIAXONE
     Indication: ENDOCARDITIS
     Dosage: 2 MG, UNK
     Route: 042

REACTIONS (1)
  - Acute kidney injury [Recovering/Resolving]

NARRATIVE: CASE EVENT DATE: 20180921
